FAERS Safety Report 20324242 (Version 1)
Quarter: 2022Q1

REPORT INFORMATION
  Report Type: Spontaneous
  Country: NL (occurrence: NL)
  Receive Date: 20220111
  Receipt Date: 20220111
  Transmission Date: 20220423
  Serious: Yes (Death)
  Sender: FDA-Public Use
  Company Number: NL-PFIZER INC-202101833852

PATIENT
  Age: 50 Year
  Sex: Male

DRUGS (6)
  1. VENLAFAXINE [Suspect]
     Active Substance: VENLAFAXINE HYDROCHLORIDE
     Indication: Insomnia
     Dosage: 37.5 MG, 1X/DAY
     Dates: start: 2011, end: 2017
  2. VENLAFAXINE [Suspect]
     Active Substance: VENLAFAXINE HYDROCHLORIDE
     Indication: Stress
  3. OXAZEPAM [Suspect]
     Active Substance: OXAZEPAM
     Indication: Stress
     Dosage: UNK
     Dates: start: 2011
  4. OXAZEPAM [Suspect]
     Active Substance: OXAZEPAM
     Indication: Insomnia
  5. TEMAZEPAM [Suspect]
     Active Substance: TEMAZEPAM
     Indication: Product used for unknown indication
     Dosage: 10 MG, 1X/DAY
     Dates: start: 2017
  6. ZOPICLONE [Suspect]
     Active Substance: ZOPICLONE
     Indication: Product used for unknown indication
     Dosage: UNK
     Dates: start: 2017

REACTIONS (4)
  - Completed suicide [Fatal]
  - Product dose omission issue [Unknown]
  - Tachyphrenia [Unknown]
  - Off label use [Unknown]

NARRATIVE: CASE EVENT DATE: 20170101
